FAERS Safety Report 19221399 (Version 5)
Quarter: 2021Q4

REPORT INFORMATION
  Report Type: Report from Study
  Country: KR (occurrence: KR)
  Receive Date: 20210505
  Receipt Date: 20211116
  Transmission Date: 20220303
  Serious: Yes (Other)
  Sender: FDA-Public Use
  Company Number: KR-TAKEDA-2020TUS048698

PATIENT
  Sex: Male

DRUGS (9)
  1. BRIGATINIB [Suspect]
     Active Substance: BRIGATINIB
     Indication: Non-small cell lung cancer
     Dosage: 90 MILLIGRAM, QD
     Route: 065
     Dates: start: 20201026, end: 20201028
  2. ASPIRIN [Concomitant]
     Active Substance: ASPIRIN
     Indication: Coronary artery disease
     Dosage: 100 MILLIGRAM
     Route: 048
     Dates: start: 20170830, end: 20201106
  3. ASPIRIN [Concomitant]
     Active Substance: ASPIRIN
     Dosage: 100 MILLIGRAM
     Route: 048
     Dates: start: 20201026, end: 20201026
  4. NICORANDIL [Concomitant]
     Active Substance: NICORANDIL
     Indication: Coronary artery disease
     Dosage: 10 MILLIGRAM
     Route: 048
     Dates: start: 20170816
  5. REXIPIN [Concomitant]
     Indication: Emphysema
     Dosage: 800 MILLIGRAM
     Route: 048
     Dates: start: 20170613
  6. REBAMIPIDE [Concomitant]
     Active Substance: REBAMIPIDE
     Indication: Gastrointestinal disorder
     Dosage: 200 MILLIGRAM
     Route: 048
     Dates: start: 20170613
  7. CODENING [Concomitant]
     Indication: Emphysema
     Dosage: UNK
     Route: 048
     Dates: start: 20181225
  8. NEURONTIN [Concomitant]
     Active Substance: GABAPENTIN
     Indication: Hypoaesthesia
     Dosage: 900 MILLIGRAM
     Route: 048
     Dates: start: 20190806
  9. COMBICIN [Concomitant]
     Indication: Pneumonia
     Dosage: 9 GRAM
     Route: 042
     Dates: start: 20201021

REACTIONS (5)
  - Pneumonia [Recovering/Resolving]
  - Pneumothorax [Not Recovered/Not Resolved]
  - Pyrexia [Recovered/Resolved]
  - Haemoptysis [Recovering/Resolving]
  - Hypophosphataemia [Recovered/Resolved]

NARRATIVE: CASE EVENT DATE: 20201027
